FAERS Safety Report 5241892-6 (Version None)
Quarter: 2007Q1

REPORT INFORMATION
  Report Type: 
  Country: None (occurrence: None)
  Receive Date: 20070220
  Receipt Date: 20070207
  Transmission Date: 20070707
  Serious: Yes (Hospitalization)
  Sender: FDA-Public Use
  Company Number: ZA-ELI_LILLY_AND_COMPANY-ZA200702001487

PATIENT
  Age: 52 Year
  Sex: Female

DRUGS (3)
  1. CYMBALTA [Suspect]
     Indication: MAJOR DEPRESSION
     Dosage: UNK MG, DAILY (1/D)
     Route: 048
  2. EPILIM [Concomitant]
     Indication: EPILEPSY
     Route: 048
  3. XANOR [Concomitant]
     Route: 048

REACTIONS (1)
  - COMA [None]
